FAERS Safety Report 18565586 (Version 1)
Quarter: 2020Q4

REPORT INFORMATION
  Report Type: Spontaneous
  Country: US (occurrence: US)
  Receive Date: 20201201
  Receipt Date: 20201201
  Transmission Date: 20210114
  Serious: No
  Sender: FDA-Public Use
  Company Number: US-GILEAD-2020-0505764

PATIENT
  Age: 4 Year
  Sex: Female

DRUGS (1)
  1. HARVONI [Suspect]
     Active Substance: LEDIPASVIR\SOFOSBUVIR
     Indication: PRODUCT USED FOR UNKNOWN INDICATION
     Dosage: 45/200 MG
     Route: 048

REACTIONS (4)
  - Product taste abnormal [Unknown]
  - Circumstance or information capable of leading to medication error [Unknown]
  - Product use issue [Unknown]
  - Product dispensing error [Unknown]
